FAERS Safety Report 5385607-X (Version None)
Quarter: 2007Q3

REPORT INFORMATION
  Report Type: 
  Country: None (occurrence: None)
  Receive Date: 20070710
  Receipt Date: 20060731
  Transmission Date: 20080115
  Serious: Yes (Hospitalization)
  Sender: FDA-Public Use
  Company Number: US-2005-020786

PATIENT
  Age: 32 Year
  Sex: Female
  Weight: 62.6 kg

DRUGS (1)
  1. YASMIN [Suspect]
     Indication: ORAL CONTRACEPTION
     Dosage: 1 TAB(S), 1X/DAY, ORAL
     Route: 048
     Dates: start: 20050201, end: 20051004

REACTIONS (5)
  - ANXIETY [None]
  - MIGRAINE [None]
  - PULMONARY THROMBOSIS [None]
  - SKIN DISCOLOURATION [None]
  - VULVOVAGINAL DISCOMFORT [None]
